FAERS Safety Report 13067760 (Version 1)
Quarter: 2016Q4

REPORT INFORMATION
  Report Type: Spontaneous
  Country: DE (occurrence: DE)
  Receive Date: 20161228
  Receipt Date: 20161228
  Transmission Date: 20170207
  Serious: Yes (Hospitalization, Other)
  Sender: FDA-Public Use
  Company Number: DE-009507513-1609DEU008474

PATIENT
  Age: 89 Year
  Sex: Female

DRUGS (1)
  1. MIRTAZAPINE. [Suspect]
     Active Substance: MIRTAZAPINE
     Indication: PRODUCT USED FOR UNKNOWN INDICATION
     Dosage: 15 MG TABLET, HALF A TABLET TAKEN ONCE A DAY
     Route: 048
     Dates: start: 20160824, end: 20160901

REACTIONS (5)
  - Encephalopathy [Unknown]
  - Angiopathy [Unknown]
  - Hallucination, visual [Unknown]
  - Visual acuity reduced [Unknown]
  - Cognitive disorder [Unknown]

NARRATIVE: CASE EVENT DATE: 20160824
